FAERS Safety Report 5228399-7 (Version None)
Quarter: 2007Q1

REPORT INFORMATION
  Report Type: 
  Country: None (occurrence: None)
  Receive Date: 20070205
  Receipt Date: 20070125
  Transmission Date: 20070707
  Serious: Yes (Hospitalization)
  Sender: FDA-Public Use
  Company Number: FRWYE380126JAN07

PATIENT
  Age: 54 Year
  Sex: Female
  Weight: 82 kg

DRUGS (2)
  1. ADVIL [Suspect]
     Indication: DENTAL OPERATION
     Dosage: UNKNWON
     Route: 048
     Dates: start: 20061121, end: 20061121
  2. RODOGYL [Suspect]
     Indication: DENTAL OPERATION
     Dosage: UNKNOWN
     Route: 048
     Dates: start: 20061121, end: 20061121

REACTIONS (4)
  - ACUTE GENERALISED EXANTHEMATOUS PUSTULOSIS [None]
  - CHOLESTASIS [None]
  - CYTOLYTIC HEPATITIS [None]
  - VOMITING [None]
